FAERS Safety Report 24767839 (Version 1)
Quarter: 2024Q4

REPORT INFORMATION
  Report Type: Spontaneous
  Country: EE (occurrence: None)
  Receive Date: 20241222
  Receipt Date: 20241222
  Transmission Date: 20250115
  Serious: Yes (Disabling)
  Sender: Public
  Company Number: None

PATIENT
  Age: 33 Year
  Sex: Male
  Weight: 74 kg

DRUGS (3)
  1. SERTRALINE [Suspect]
     Active Substance: SERTRALINE HYDROCHLORIDE
     Indication: Panic attack
     Dosage: FREQUENCY : DAILY;?
     Route: 048
     Dates: start: 20240122, end: 20240216
  2. SERTRALINE [Suspect]
     Active Substance: SERTRALINE HYDROCHLORIDE
     Indication: Depression
  3. VITAMIN D [Concomitant]
     Active Substance: VITAMIN D NOS

REACTIONS (18)
  - Insomnia [None]
  - Headache [None]
  - Burning sensation [None]
  - Depersonalisation/derealisation disorder [None]
  - Post-acute COVID-19 syndrome [None]
  - Sexual dysfunction [None]
  - Genital hypoaesthesia [None]
  - Decreased appetite [None]
  - Hypoaesthesia [None]
  - Anorgasmia [None]
  - Erectile dysfunction [None]
  - Anhedonia [None]
  - Flat affect [None]
  - Ageusia [None]
  - Apathy [None]
  - Brain fog [None]
  - Mental impairment [None]
  - Sensory loss [None]

NARRATIVE: CASE EVENT DATE: 20240122
